FAERS Safety Report 7438987-5 (Version None)
Quarter: 2011Q2

REPORT INFORMATION
  Report Type: 
  Country: None (occurrence: None)
  Receive Date: 20110427
  Receipt Date: 20110418
  Transmission Date: 20111010
  Serious: Yes (Other)
  Sender: FDA-Public Use
  Company Number: US-US-EMD SERONO, INC.-7022075

PATIENT
  Sex: Female

DRUGS (3)
  1. REBIF [Suspect]
     Indication: MULTIPLE SCLEROSIS
     Route: 058
     Dates: start: 20060418
  2. TRAMADOL [Concomitant]
     Indication: PREMEDICATION
  3. ACETAMINOPHEN [Concomitant]
     Indication: PREMEDICATION

REACTIONS (9)
  - FALL [None]
  - INJECTION SITE ERYTHEMA [None]
  - INJECTION SITE PAIN [None]
  - CHILLS [None]
  - SOMNOLENCE [None]
  - OPTIC NEURITIS [None]
  - PAIN [None]
  - PYREXIA [None]
  - MULTIPLE SCLEROSIS RELAPSE [None]
